FAERS Safety Report 12138516 (Version 2)
Quarter: 2019Q1

REPORT INFORMATION
  Report Type: Report from Study
  Country: US (occurrence: US)
  Receive Date: 20160302
  Receipt Date: 20190128
  Transmission Date: 20190417
  Serious: Yes (Death, Other)
  Sender: FDA-Public Use
  Company Number: US-SA-2016SA010599

PATIENT
  Age: 55 Year
  Sex: Male

DRUGS (1)
  1. ELIGLUSTAT. [Suspect]
     Active Substance: ELIGLUSTAT
     Indication: GAUCHER^S DISEASE
     Dosage: 84 MG,QD
     Route: 048
     Dates: start: 20151124

REACTIONS (7)
  - Dementia [Not Recovered/Not Resolved]
  - Diarrhoea [Recovered/Resolved]
  - Erythema [Recovered/Resolved]
  - Parkinson^s disease [Not Recovered/Not Resolved]
  - Job dissatisfaction [Unknown]
  - Death [Fatal]
  - Blood creatine phosphokinase increased [Not Recovered/Not Resolved]

NARRATIVE: CASE EVENT DATE: 20181231
